FAERS Safety Report 7715525-0 (Version None)
Quarter: 2011Q3

REPORT INFORMATION
  Report Type: 
  Country: None (occurrence: None)
  Receive Date: 20110810
  Receipt Date: 20110429
  Transmission Date: 20111222
  Serious: No
  Sender: FDA-Public Use
  Company Number: 1000020672

PATIENT
  Age: 55 Year
  Sex: Male

DRUGS (3)
  1. SAVELLA [Suspect]
     Indication: FIBROMYALGIA
     Dosage: SEE IMAGE
     Route: 048
  2. SAVELLA [Suspect]
     Indication: FIBROMYALGIA
     Dosage: SEE IMAGE
     Route: 048
  3. SAVELLA [Suspect]
     Indication: FIBROMYALGIA
     Dosage: SEE IMAGE
     Route: 048

REACTIONS (2)
  - DYSURIA [None]
  - HYPOTONIC URINARY BLADDER [None]
